FAERS Safety Report 15414819 (Version 2)
Quarter: 2018Q3

REPORT INFORMATION
  Report Type: Spontaneous
  Country: JP (occurrence: JP)
  Receive Date: 20180921
  Receipt Date: 20180928
  Transmission Date: 20181010
  Serious: Yes (Death, Other)
  Sender: FDA-Public Use
  Company Number: JP-NAPPMUNDI-GBR-2018-0057873

PATIENT
  Age: 86 Year
  Sex: Female

DRUGS (2)
  1. NORSPAN [Suspect]
     Active Substance: BUPRENORPHINE
     Indication: PRODUCT USED FOR UNKNOWN INDICATION
     Dosage: 10 MCG, Q1H (STRENGTH 10MG PER PATCH PER WEEK)
     Route: 062
     Dates: start: 20180503
  2. NORSPAN [Suspect]
     Active Substance: BUPRENORPHINE
     Dosage: 5 MCG, Q1H (STRENGTH 5MG PER PATCH PER WEEK)
     Route: 062
     Dates: start: 20180419, end: 20180502

REACTIONS (2)
  - Pneumonia aspiration [Fatal]
  - Vomiting [Unknown]

NARRATIVE: CASE EVENT DATE: 20180518
